FAERS Safety Report 8246507 (Version 3)
Quarter: 2013Q1

REPORT INFORMATION
  Report Type: Spontaneous
  Country: US (occurrence: US)
  Receive Date: 20111116
  Receipt Date: 20130103
  Transmission Date: 20140127
  Serious: Yes (Death, Other)
  Sender: FDA-Public Use
  Company Number: US-ASTELLAS-2011US007456

PATIENT
  Age: 69 None
  Sex: Female

DRUGS (2)
  1. VESICARE [Suspect]
     Indication: STRESS URINARY INCONTINENCE
     Dosage: 10 MG, UNKNOWN/D
     Route: 048
     Dates: start: 20090128
  2. VESICARE [Suspect]
     Indication: HYPERTONIC BLADDER
     Dosage: 10 MG, UID/QD
     Route: 048
     Dates: start: 20120113, end: 20121213

REACTIONS (6)
  - Drug ineffective [Unknown]
  - Intestinal perforation [Fatal]
  - Exsanguination [Fatal]
  - Lung neoplasm malignant [Unknown]
  - Hepatic cancer [Unknown]
  - Bone cancer [Unknown]
